FAERS Safety Report 19990320 (Version 1)
Quarter: 2021Q4

REPORT INFORMATION
  Report Type: Spontaneous
  Country: US (occurrence: US)
  Receive Date: 20211025
  Receipt Date: 20211025
  Transmission Date: 20220303
  Serious: No
  Sender: FDA-Public Use
  Company Number: 2021A762365

PATIENT
  Sex: Female
  Weight: 72.6 kg

DRUGS (1)
  1. BUDESONIDE\FORMOTEROL\GLYCOPYRRONIUM [Suspect]
     Active Substance: BUDESONIDE\FORMOTEROL\GLYCOPYRRONIUM
     Indication: Asthma
     Dosage: 2 PUFFS 2 TIMES A DAY
     Route: 055
     Dates: start: 20210715

REACTIONS (3)
  - Bronchial disorder [Unknown]
  - Chest discomfort [Unknown]
  - Device malfunction [Unknown]
